FAERS Safety Report 6817655-4 (Version None)
Quarter: 2010Q3

REPORT INFORMATION
  Report Type: 
  Country: None (occurrence: None)
  Receive Date: 20100706
  Receipt Date: 20100624
  Transmission Date: 20110219
  Serious: Yes (Other)
  Sender: FDA-Public Use
  Company Number: JP-PFIZER INC-2010067748

PATIENT
  Age: 3 Year
  Sex: Female

DRUGS (2)
  1. ALDACTONE [Suspect]
     Indication: OEDEMA
     Dosage: 50 MG, DAILY
     Route: 048
     Dates: start: 20100222
  2. LASIX [Concomitant]
     Dosage: 125 MG, DAILY
     Route: 048
     Dates: start: 20100222

REACTIONS (1)
  - CHROMATURIA [None]
